FAERS Safety Report 4627095-4 (Version None)
Quarter: 2005Q1

REPORT INFORMATION
  Report Type: 
  Country: None (occurrence: None)
  Receive Date: 20050331
  Receipt Date: 20050314
  Transmission Date: 20050727
  Serious: Yes (Hospitalization)
  Sender: FDA-Public Use
  Company Number: 2005-BP-03238BP

PATIENT
  Age: 59 Year
  Sex: Male
  Weight: 104.5 kg

DRUGS (6)
  1. MOBIC [Suspect]
     Indication: OSTEOARTHRITIS
     Dosage: 15 MG (15 MG, 1 IN 1 D), PO
     Route: 048
     Dates: end: 20050222
  2. AMARYL [Concomitant]
  3. ATACAND [Concomitant]
  4. NORVASC [Concomitant]
  5. TRICOR [Concomitant]
  6. ACETYLSALICYLIC ACID SRT [Concomitant]

REACTIONS (4)
  - ASTHENIA [None]
  - DUODENAL ULCER HAEMORRHAGE [None]
  - GLUCOSE TOLERANCE IMPAIRED [None]
  - INTESTINAL PERFORATION [None]
